FAERS Safety Report 14978473 (Version 2)
Quarter: 2018Q2

REPORT INFORMATION
  Report Type: Spontaneous
  Country: JP (occurrence: JP)
  Receive Date: 20180606
  Receipt Date: 20180619
  Transmission Date: 20180711
  Serious: Yes (Other)
  Sender: FDA-Public Use
  Company Number: JP-GLAXOSMITHKLINE-JP2018JPN095986

PATIENT
  Age: 70 Year
  Sex: Female

DRUGS (12)
  1. GASTER [Concomitant]
     Active Substance: FAMOTIDINE
     Dosage: UNK
  2. VESICARE [Concomitant]
     Active Substance: SOLIFENACIN SUCCINATE
     Dosage: UNK
  3. LIMAS [Concomitant]
     Active Substance: LITHIUM CARBONATE
     Dosage: 600 MG, 1D
     Dates: start: 20130816
  4. BROTIZOLAM TABLETS [Concomitant]
     Dosage: 0.25 MG, 1D
     Dates: start: 20130816
  5. EDIROL [Concomitant]
     Active Substance: ELDECALCITOL
     Dosage: UNK
  6. NICERGOLINE [Concomitant]
     Active Substance: NICERGOLINE
     Dosage: UNK
  7. DEPAS TABLETS [Concomitant]
     Active Substance: ETIZOLAM
     Dosage: 0.5 MG, 1D
     Dates: start: 20140522
  8. NORVASC [Concomitant]
     Active Substance: AMLODIPINE BESYLATE
     Dosage: UNK
  9. LAMICTAL [Suspect]
     Active Substance: LAMOTRIGINE
     Indication: BIPOLAR DISORDER
     Dosage: 25 MG, 1D
     Route: 048
     Dates: start: 20180104, end: 20180117
  10. VALSARTAN. [Concomitant]
     Active Substance: VALSARTAN
     Dosage: UNK
  11. TICLOPIDINE HYDROCHLORIDE. [Concomitant]
     Active Substance: TICLOPIDINE HYDROCHLORIDE
     Dosage: UNK
  12. LAMICTAL [Suspect]
     Active Substance: LAMOTRIGINE
     Dosage: 50 MG, 1D
     Route: 048
     Dates: start: 20180118, end: 20180130

REACTIONS (7)
  - Conjunctival hyperaemia [Unknown]
  - Conjunctivitis [Recovered/Resolved]
  - Erythema [Unknown]
  - Drug eruption [Unknown]
  - Toxic skin eruption [Recovered/Resolved]
  - Rash pruritic [Recovering/Resolving]
  - Papule [Unknown]

NARRATIVE: CASE EVENT DATE: 20180130
